FAERS Safety Report 5443236-3 (Version None)
Quarter: 2007Q3

REPORT INFORMATION
  Report Type: 
  Country: None (occurrence: None)
  Receive Date: 20070831
  Receipt Date: 20070831
  Transmission Date: 20080115
  Serious: Yes (Life-Threatening, Other)
  Sender: FDA-Public Use
  Company Number: None

PATIENT
  Sex: Female

DRUGS (1)
  1. ENBREL [Suspect]
     Indication: RHEUMATOID ARTHRITIS
     Dosage: 50MG ONCE WEEKLY SQ
     Route: 058
     Dates: start: 20070111, end: 20070813

REACTIONS (7)
  - CARPAL TUNNEL DECOMPRESSION [None]
  - CELLULITIS [None]
  - INFECTION [None]
  - MASS [None]
  - NAIL BED INFECTION [None]
  - ONYCHOMADESIS [None]
  - RASH [None]
